FAERS Safety Report 24535290 (Version 1)
Quarter: 2024Q4

REPORT INFORMATION
  Report Type: Report from Study
  Country: US (occurrence: US)
  Receive Date: 20241022
  Receipt Date: 20241022
  Transmission Date: 20250114
  Serious: Yes (Other)
  Sender: JAZZ
  Company Number: US-JAZZ PHARMACEUTICALS-2022-US-002441

PATIENT
  Age: 31 Year
  Sex: Female
  Weight: 40.823 kg

DRUGS (27)
  1. XYWAV [Suspect]
     Active Substance: CALCIUM OXYBATE\MAGNESIUM OXYBATE\POTASSIUM OXYBATE\SODIUM OXYBATE
     Indication: Narcolepsy
     Dosage: 3.75 GRAM, BID
     Route: 048
     Dates: start: 202111, end: 202112
  2. XYWAV [Suspect]
     Active Substance: CALCIUM OXYBATE\MAGNESIUM OXYBATE\POTASSIUM OXYBATE\SODIUM OXYBATE
     Indication: Cataplexy
     Dosage: 4 GRAM FIRST DOSE
     Route: 048
     Dates: start: 202112
  3. XYWAV [Suspect]
     Active Substance: CALCIUM OXYBATE\MAGNESIUM OXYBATE\POTASSIUM OXYBATE\SODIUM OXYBATE
     Indication: Somnolence
     Dosage: 3.75 GRAM SECOND DOSE
     Route: 048
     Dates: start: 202112
  4. XYWAV [Suspect]
     Active Substance: CALCIUM OXYBATE\MAGNESIUM OXYBATE\POTASSIUM OXYBATE\SODIUM OXYBATE
     Dosage: UNK 4.5 G AT BEDTIME
     Route: 048
  5. XYWAV [Suspect]
     Active Substance: CALCIUM OXYBATE\MAGNESIUM OXYBATE\POTASSIUM OXYBATE\SODIUM OXYBATE
     Dosage: 4.5 GRAM, BID
  6. XYWAV [Suspect]
     Active Substance: CALCIUM OXYBATE\MAGNESIUM OXYBATE\POTASSIUM OXYBATE\SODIUM OXYBATE
     Dosage: UNK
  7. FLUVOXAMINE [Suspect]
     Active Substance: FLUVOXAMINE
     Indication: Product used for unknown indication
     Dosage: 150 MG
     Dates: start: 20190901
  8. FLUVOXAMINE [Suspect]
     Active Substance: FLUVOXAMINE
     Dosage: 100 MG
     Dates: start: 20240601
  9. FLUVOXAMINE [Suspect]
     Active Substance: FLUVOXAMINE
     Dosage: 300 MG
  10. FLUVOXAMINE [Suspect]
     Active Substance: FLUVOXAMINE
     Dosage: 200 MG
  11. VYVANSE [Concomitant]
     Active Substance: LISDEXAMFETAMINE DIMESYLATE
     Indication: Product used for unknown indication
     Dosage: UNK
     Dates: start: 20190501
  12. RETIN-A [Concomitant]
     Active Substance: TRETINOIN
     Indication: Product used for unknown indication
     Dosage: UNK
     Dates: start: 20191003
  13. SODIUM SULFACETAMIDE [Concomitant]
     Active Substance: SULFACETAMIDE SODIUM
     Indication: Product used for unknown indication
     Dosage: UNK
     Dates: start: 20191003
  14. GUANFACINE [Concomitant]
     Active Substance: GUANFACINE
     Indication: Product used for unknown indication
     Dosage: UNK
     Dates: start: 20221201
  15. GUANFACINE [Concomitant]
     Active Substance: GUANFACINE
     Dosage: UNK,  2 MG TABLET
     Dates: start: 20221201
  16. MIDODRINE HYDROCHLORIDE [Concomitant]
     Active Substance: MIDODRINE HYDROCHLORIDE
     Indication: Product used for unknown indication
     Dosage: UNK
     Dates: start: 20230630
  17. SPIRONOLACTONE [Concomitant]
     Active Substance: SPIRONOLACTONE
     Indication: Product used for unknown indication
     Dosage: UNK
     Dates: start: 20191003
  18. ACETYLCYSTEINE [Concomitant]
     Active Substance: ACETYLCYSTEINE
     Indication: Product used for unknown indication
     Dosage: UNK, CAPLET
     Dates: start: 20221201
  19. KETAMINE HYDROCHLORIDE [Concomitant]
     Active Substance: KETAMINE HYDROCHLORIDE
     Indication: Product used for unknown indication
     Dosage: UNK, 50 MG/ML SYRINGE
     Dates: start: 20230701
  20. ARMODAFINIL [Concomitant]
     Active Substance: ARMODAFINIL
     Indication: Product used for unknown indication
     Dosage: UNK
  21. DEXTROAMPHETAMINE [Concomitant]
     Active Substance: DEXTROAMPHETAMINE
     Indication: Product used for unknown indication
     Dosage: UNK
  22. DIETARY SUPPLEMENT [Concomitant]
     Active Substance: DIETARY SUPPLEMENT
     Indication: Product used for unknown indication
     Dosage: 200 MILLIGRAM IN THE MORNING
  23. LEVOMEFOLIC ACID [Concomitant]
     Active Substance: LEVOMEFOLIC ACID
     Indication: Product used for unknown indication
     Dosage: 7.5 MILLIGRAM, QD
  24. VITAMIN K 2 [Concomitant]
     Indication: Product used for unknown indication
     Dosage: 100 MICROGRAM, QD
  25. ALPHA GPC [Concomitant]
     Indication: Product used for unknown indication
     Dosage: 600 MILLIGRAM, QD
  26. URIDINE [Concomitant]
     Active Substance: URIDINE
     Indication: Product used for unknown indication
     Dosage: 300 MILLIGRAM, QD
  27. MIRTAZAPINE [Concomitant]
     Active Substance: MIRTAZAPINE
     Indication: Product used for unknown indication
     Dosage: UNK

REACTIONS (6)
  - Autism spectrum disorder [Unknown]
  - Eczema [Unknown]
  - Depression [Unknown]
  - Lethargy [Unknown]
  - Therapeutic response changed [Not Recovered/Not Resolved]
  - Product administration interrupted [Unknown]

NARRATIVE: CASE EVENT DATE: 20230101
